FAERS Safety Report 7444273 (Version 3)
Quarter: 2012Q4

REPORT INFORMATION
  Report Type: 
  Country: US (occurrence: US)
  Receive Date: 20100628
  Receipt Date: 20121204
  Transmission Date: 20130627
  Serious: No
  Sender: FDA-Public Use
  Company Number: US-PFIZER INC-2007086915

PATIENT
  Age: 74 Year
  Sex: Female
  Weight: 48.98 kg

DRUGS (7)
  1. XALATAN [Suspect]
     Indication: GLAUCOMA
     Dosage: UNK
     Dates: start: 2002
  2. XALATAN [Suspect]
     Dosage: UNK, daily
  3. TRAVATAN [Suspect]
     Indication: GLAUCOMA
     Dosage: UNK
  4. LUMIGAN [Suspect]
     Indication: GLAUCOMA
     Dosage: UNK
  5. ZETIA [Concomitant]
     Indication: HIGH CHOLESTEROL
     Dosage: 10 mg, daily
  6. NORVASC [Concomitant]
     Indication: BLOOD PRESSURE HIGH
     Dosage: 2.5 mg, daily
  7. LISINOPRIL [Concomitant]
     Indication: BLOOD PRESSURE HIGH
     Dosage: 2.5 mg, daily

REACTIONS (2)
  - Eye irritation [Unknown]
  - Ocular hyperaemia [Unknown]
